FAERS Safety Report 12923486 (Version 1)
Quarter: 2016Q4

REPORT INFORMATION
  Report Type: Spontaneous
  Country: US (occurrence: US)
  Receive Date: 20161109
  Receipt Date: 20161109
  Transmission Date: 20170207
  Serious: No
  Sender: FDA-Public Use
  Company Number: None

PATIENT

DRUGS (2)
  1. PROTAMINE [Suspect]
     Active Substance: PROTAMINE
     Route: 042
  2. PANTOPAQUE [Suspect]
     Active Substance: IOPHENDYLATE
     Route: 042

REACTIONS (1)
  - Drug prescribing error [None]
